FAERS Safety Report 23187928 (Version 6)
Quarter: 2024Q2

REPORT INFORMATION
  Report Type: Other
  Country: US (occurrence: US)
  Receive Date: 20231115
  Receipt Date: 20240502
  Transmission Date: 20240716
  Serious: Yes (Hospitalization, Other)
  Sender: FDA-Public Use
  Company Number: US-TRAVERE-2023TVT00599

PATIENT
  Age: 50 Year
  Sex: Male

DRUGS (3)
  1. FILSPARI [Suspect]
     Active Substance: SPARSENTAN
     Indication: IgA nephropathy
     Dosage: UNKNOWN
     Route: 048
     Dates: start: 20231004
  2. FILSPARI [Suspect]
     Active Substance: SPARSENTAN
     Dosage: 200 MG
     Route: 048
     Dates: start: 20231006
  3. FILSPARI [Suspect]
     Active Substance: SPARSENTAN
     Dosage: 400 MG
     Route: 048
     Dates: start: 20231020

REACTIONS (5)
  - Renal impairment [Unknown]
  - Urinary tract infection [Unknown]
  - Dizziness postural [Unknown]
  - Weight increased [Unknown]
  - Joint swelling [Unknown]

NARRATIVE: CASE EVENT DATE: 20231120
